FAERS Safety Report 9535638 (Version 1)
Quarter: 2013Q3

REPORT INFORMATION
  Report Type: Spontaneous
  Country: US (occurrence: US)
  Receive Date: 20130919
  Receipt Date: 20130919
  Transmission Date: 20140515
  Serious: No
  Sender: FDA-Public Use
  Company Number: US-BIOGENIDEC-2013BI077583

PATIENT
  Age: 48 Year
  Sex: Female

DRUGS (2)
  1. AVONEX [Suspect]
     Indication: RELAPSING-REMITTING MULTIPLE SCLEROSIS
     Route: 030
     Dates: start: 20130622, end: 20130629
  2. AVONEX [Suspect]
     Indication: RELAPSING-REMITTING MULTIPLE SCLEROSIS
     Route: 030
     Dates: start: 20130725, end: 20130725

REACTIONS (5)
  - Hypertension [Not Recovered/Not Resolved]
  - Blood potassium decreased [Recovered/Resolved]
  - Drug interaction [Unknown]
  - Chest pain [Recovered/Resolved]
  - Feeling abnormal [Not Recovered/Not Resolved]
